FAERS Safety Report 8420145-9 (Version None)
Quarter: 2012Q2

REPORT INFORMATION
  Report Type: 
  Country: None (occurrence: None)
  Receive Date: 20120323
  Receipt Date: 20111129
  Transmission Date: 20120825
  Serious: Yes (Hospitalization)
  Sender: FDA-Public Use
  Company Number: 163-21880-11112657

PATIENT
  Age: 85 Year
  Sex: Male

DRUGS (2)
  1. REVLIMID [Suspect]
     Indication: MULTIPLE MYELOMA
     Dosage: 10 MG, DAILY FOR 21 DAYS ON, 7 DAYS OFF, PO, 10 MG, DAILY FOR 21 DAYS ON, 7 DAYS OFF, PO
     Route: 048
     Dates: start: 20111025
  2. REVLIMID [Suspect]
     Indication: MULTIPLE MYELOMA
     Dosage: 10 MG, DAILY FOR 21 DAYS ON, 7 DAYS OFF, PO, 10 MG, DAILY FOR 21 DAYS ON, 7 DAYS OFF, PO
     Route: 048
     Dates: start: 20111122, end: 20111129

REACTIONS (2)
  - ASTHENIA [None]
  - BLOOD COUNT ABNORMAL [None]
